FAERS Safety Report 17864521 (Version 2)
Quarter: 2020Q2

REPORT INFORMATION
  Report Type: Spontaneous
  Country: FI (occurrence: FI)
  Receive Date: 20200605
  Receipt Date: 20200630
  Transmission Date: 20200714
  Serious: Yes (Other)
  Sender: FDA-Public Use
  Company Number: FI-BRISTOL-MYERS SQUIBB COMPANY-BMS-2020-043643

PATIENT
  Age: 58 Year
  Sex: Male

DRUGS (1)
  1. ELIQUIS [Suspect]
     Active Substance: APIXABAN
     Indication: DEEP VEIN THROMBOSIS
     Route: 065

REACTIONS (4)
  - Faeces discoloured [Unknown]
  - Pancreatic carcinoma metastatic [Unknown]
  - Angiopathy [Unknown]
  - Haemoglobin decreased [Unknown]
